FAERS Safety Report 11788683 (Version 1)
Quarter: 2015Q4

REPORT INFORMATION
  Report Type: Spontaneous
  Country: US (occurrence: None)
  Receive Date: 20151125
  Receipt Date: 20151125
  Transmission Date: 20160305
  Serious: Yes (Hospitalization)
  Sender: FDA-Public Use
  Company Number: US-ALSI-201500300

PATIENT
  Age: 47 Year
  Sex: Female

DRUGS (4)
  1. FENTANYL. [Concomitant]
     Active Substance: FENTANYL
  2. NITROUS OXIDE. [Suspect]
     Active Substance: NITROUS OXIDE
     Indication: ANAESTHESIA PROCEDURE
     Dosage: 70% TOTAL RESPIRATORY
     Route: 055
  3. ISOFLURANE. [Concomitant]
     Active Substance: ISOFLURANE
  4. OXYGEN. [Concomitant]
     Active Substance: OXYGEN

REACTIONS (3)
  - CSF protein increased [None]
  - Pernicious anaemia [None]
  - Subacute combined cord degeneration [None]
